FAERS Safety Report 8571656-7 (Version None)
Quarter: 2012Q3

REPORT INFORMATION
  Report Type: 
  Country: None (occurrence: None)
  Receive Date: 20120806
  Receipt Date: 20120731
  Transmission Date: 20120928
  Serious: Yes (Hospitalization)
  Sender: FDA-Public Use
  Company Number: IE-JNJFOC-20120712637

PATIENT
  Age: 67 Year
  Sex: Female

DRUGS (1)
  1. STELARA [Suspect]
     Indication: PSORIASIS
     Route: 058
     Dates: start: 20110101, end: 20110101

REACTIONS (4)
  - CONDITION AGGRAVATED [None]
  - ALOPECIA [None]
  - ORAL HERPES [None]
  - PEMPHIGUS [None]
